FAERS Safety Report 16979568 (Version 2)
Quarter: 2019Q4

REPORT INFORMATION
  Report Type: Spontaneous
  Country: US (occurrence: US)
  Receive Date: 20191031
  Receipt Date: 20191111
  Transmission Date: 20200122
  Serious: Yes (Other)
  Sender: FDA-Public Use
  Company Number: US-SHIRE-US201936240

PATIENT
  Sex: Female

DRUGS (2)
  1. XIIDRA [Suspect]
     Active Substance: LIFITEGRAST
     Indication: PRODUCT USED FOR UNKNOWN INDICATION
     Route: 047
  2. BAUSCH + LOMB MOISTURE EYES [Concomitant]
     Indication: PRODUCT USED FOR UNKNOWN INDICATION

REACTIONS (6)
  - Multiple sclerosis [Unknown]
  - Blepharitis [Unknown]
  - Adverse event [Unknown]
  - Liquid product physical issue [Unknown]
  - Product use complaint [Unknown]
  - Wrong technique in product usage process [Unknown]
